FAERS Safety Report 24607827 (Version 1)
Quarter: 2024Q4

REPORT INFORMATION
  Report Type: Spontaneous
  Country: US (occurrence: None)
  Receive Date: 20241111
  Receipt Date: 20241111
  Transmission Date: 20250115
  Serious: Yes (Death)
  Sender: Public
  Company Number: None

PATIENT
  Age: 59 Year
  Sex: Female
  Weight: 92.6 kg

DRUGS (3)
  1. YESCARTA [Suspect]
     Active Substance: AXICABTAGENE CILOLEUCEL
     Indication: Diffuse large B-cell lymphoma
     Dosage: 68ML ONCE INTRAV ENOUS DRIP
     Route: 041
     Dates: start: 20241028, end: 20241028
  2. TOCILIZUMAB [Concomitant]
     Active Substance: TOCILIZUMAB
     Dates: start: 20241029, end: 20241103
  3. ANAKINRA [Concomitant]
     Active Substance: ANAKINRA
     Dates: start: 20241101, end: 20241103

REACTIONS (3)
  - Lymphocyte adoptive therapy [None]
  - Sepsis [None]
  - Intraventricular haemorrhage [None]

NARRATIVE: CASE EVENT DATE: 20241105
